FAERS Safety Report 9870224 (Version 1)
Quarter: 2014Q1

REPORT INFORMATION
  Report Type: Spontaneous
  Country: IT (occurrence: IT)
  Receive Date: 20140205
  Receipt Date: 20140205
  Transmission Date: 20141002
  Serious: Yes (Other)
  Sender: FDA-Public Use
  Company Number: IT-ABBVIE-14P-083-1197094-00

PATIENT
  Age: 50 Year
  Sex: Female

DRUGS (6)
  1. DEPAKINE CHRONO [Suspect]
     Indication: MANIA
     Route: 048
     Dates: start: 20131220, end: 20131223
  2. CLOZAPINE [Suspect]
     Indication: MANIA
     Route: 048
     Dates: start: 20131220, end: 20131231
  3. ABILIFY [Suspect]
     Indication: MANIA
     Route: 048
     Dates: start: 20131220, end: 20131231
  4. DELORAZEPAM [Concomitant]
     Indication: PRODUCT USED FOR UNKNOWN INDICATION
     Dates: start: 20131220, end: 20131231
  5. INDERAL [Concomitant]
     Indication: PRODUCT USED FOR UNKNOWN INDICATION
     Dates: start: 20131220, end: 20131231
  6. AKINETON [Concomitant]
     Indication: PRODUCT USED FOR UNKNOWN INDICATION
     Dates: start: 20131220, end: 20131231

REACTIONS (1)
  - Neutropenia [Recovered/Resolved]
